FAERS Safety Report 7224482-5 (Version None)
Quarter: 2011Q1

REPORT INFORMATION
  Report Type: 
  Country: None (occurrence: None)
  Receive Date: 20110113
  Receipt Date: 20110110
  Transmission Date: 20110831
  Serious: No
  Sender: FDA-Public Use
  Company Number: US-PFIZER INC-2011005923

PATIENT
  Sex: Female

DRUGS (3)
  1. BUPROPION [Suspect]
     Dosage: UNK
  2. TOVIAZ [Suspect]
     Dosage: UNK
  3. LYRICA [Suspect]

REACTIONS (2)
  - IRRITABILITY [None]
  - SOMNOLENCE [None]
